FAERS Safety Report 12955919 (Version 2)
Quarter: 2016Q4

REPORT INFORMATION
  Report Type: Spontaneous
  Country: US (occurrence: US)
  Receive Date: 20161118
  Receipt Date: 20161222
  Transmission Date: 20170207
  Serious: Yes (Hospitalization, Other)
  Sender: FDA-Public Use
  Company Number: US-GLAXOSMITHKLINE-US2016170206

PATIENT
  Age: 65 Year
  Sex: Male
  Weight: 112 kg

DRUGS (1)
  1. NUCALA [Suspect]
     Active Substance: MEPOLIZUMAB
     Indication: ASTHMA
     Dosage: UNK
     Route: 058
     Dates: start: 20160722

REACTIONS (8)
  - Headache [Recovering/Resolving]
  - Vertigo [Unknown]
  - Transient ischaemic attack [Recovered/Resolved]
  - Gait disturbance [Unknown]
  - Hemianopia [Unknown]
  - Vision blurred [Unknown]
  - Diplopia [Unknown]
  - Dizziness [Unknown]

NARRATIVE: CASE EVENT DATE: 20161108
